FAERS Safety Report 10080214 (Version 2)
Quarter: 2014Q4

REPORT INFORMATION
  Report Type: Spontaneous
  Country: US (occurrence: US)
  Receive Date: 20140415
  Receipt Date: 20141009
  Transmission Date: 20150528
  Serious: Yes (Other)
  Sender: FDA-Public Use
  Company Number: PHHY2014US045486

PATIENT
  Sex: Female

DRUGS (10)
  1. HYDROMORPHONE HYDROCHLORIDE. [Suspect]
     Active Substance: HYDROMORPHONE HYDROCHLORIDE
     Indication: PRODUCT USED FOR UNKNOWN INDICATION
     Dosage: 1 DF, DAILY
  2. CLONAZEPAM. [Suspect]
     Active Substance: CLONAZEPAM
     Indication: PRODUCT USED FOR UNKNOWN INDICATION
     Dosage: 1 DF, TID (AS NEEDED)
     Route: 065
  3. BACLOFEN INTRATHECAL [Suspect]
     Active Substance: BACLOFEN
     Indication: POST LAMINECTOMY SYNDROME
     Dosage: UNK
     Route: 037
  4. DILAUDID [Suspect]
     Active Substance: HYDROMORPHONE HYDROCHLORIDE
     Indication: PRODUCT USED FOR UNKNOWN INDICATION
     Route: 065
  5. OXYCODONE [Suspect]
     Active Substance: OXYCODONE
     Indication: PRODUCT USED FOR UNKNOWN INDICATION
     Dosage: 2 DF, Q4H (1-2 TABS EVERY 4 HS AS NEEDED)
     Route: 065
  6. MARIJUANA [Suspect]
     Active Substance: CANNABIS SATIVA SUBSP. INDICA TOP
     Indication: PRODUCT USED FOR UNKNOWN INDICATION
     Dosage: UNK
     Route: 065
  7. BUPIVACAINE [Suspect]
     Active Substance: BUPIVACAINE
     Indication: PRODUCT USED FOR UNKNOWN INDICATION
     Dosage: 0.499 MG/ML, UNK
     Route: 037
  8. ALBUTEROL SULFATE TABLETS USP [Suspect]
     Active Substance: ALBUTEROL SULFATE
     Indication: PRODUCT USED FOR UNKNOWN INDICATION
     Dosage: 2 DF, Q6H
     Route: 065
  9. FENTANYL. [Suspect]
     Active Substance: FENTANYL
     Indication: PRODUCT USED FOR UNKNOWN INDICATION
     Dosage: 0.05995 MG, PER DAY
     Route: 065
  10. TIZANIDINE (TIZANIDINE) [Suspect]
     Active Substance: TIZANIDINE
     Indication: PRODUCT USED FOR UNKNOWN INDICATION
     Dosage: 2 MG, QHS (AS NEEDED)
     Route: 065

REACTIONS (10)
  - Infusion site mass [Unknown]
  - Incision site erythema [Unknown]
  - Implant site extravasation [Unknown]
  - Gait disturbance [Unknown]
  - Incision site pain [Unknown]
  - Implant site swelling [Unknown]
  - Incision site infection [Unknown]
  - Burning sensation [Unknown]
  - Infusion site pain [Unknown]
  - Therapeutic response decreased [Unknown]
